FAERS Safety Report 5648882-X (Version None)
Quarter: 2008Q1

REPORT INFORMATION
  Report Type: 
  Country: None (occurrence: None)
  Receive Date: 20080229
  Receipt Date: 20080220
  Transmission Date: 20080703
  Serious: Yes (Life-Threatening)
  Sender: FDA-Public Use
  Company Number: 18453

PATIENT
  Age: 79 Year
  Sex: Female
  Weight: 100 kg

DRUGS (4)
  1. ACYCLOVIR [Suspect]
     Indication: ENCEPHALITIS HERPES
     Dosage: 950 MG TID IV
     Route: 042
     Dates: start: 20080114
  2. ASPIRIN [Concomitant]
  3. LANSOPRAZOLE [Concomitant]
  4. PHENYTOIN [Concomitant]

REACTIONS (1)
  - RENAL FAILURE ACUTE [None]
